FAERS Safety Report 26129257 (Version 1)
Quarter: 2025Q4

REPORT INFORMATION
  Report Type: Report from Study
  Country: CN (occurrence: CN)
  Receive Date: 20251208
  Receipt Date: 20251208
  Transmission Date: 20260118
  Serious: Yes (Other)
  Sender: BEIGENE
  Company Number: CN-JIANGSUAOSAIKANG-2025ASK006475

PATIENT
  Age: 58 Year
  Sex: Female
  Weight: 51 kg

DRUGS (9)
  1. TISLELIZUMAB [Suspect]
     Active Substance: TISLELIZUMAB
     Indication: Adenocarcinoma gastric
     Dosage: 200 MILLIGRAM, Q3WK
     Dates: start: 20250912, end: 20250912
  2. TISLELIZUMAB [Suspect]
     Active Substance: TISLELIZUMAB
     Dosage: 200 MILLIGRAM, Q3WK
     Dates: start: 20251015, end: 20251105
  3. INVESTIGATIONAL PRODUCT [Suspect]
     Active Substance: INVESTIGATIONAL PRODUCT
     Indication: Adenocarcinoma gastric
     Dosage: 6 MILLIGRAM/KILOGRAM, Q3WK
     Dates: start: 20250912, end: 20250912
  4. INVESTIGATIONAL PRODUCT [Suspect]
     Active Substance: INVESTIGATIONAL PRODUCT
     Dosage: 6 MILLIGRAM/KILOGRAM, Q3WK
     Dates: start: 20251015, end: 20251105
  5. OXALIPLATIN [Suspect]
     Active Substance: OXALIPLATIN
     Indication: Adenocarcinoma gastric
     Dosage: 130MG/M2,EVERY 3 WEEKS
     Dates: start: 20250912, end: 20250912
  6. OXALIPLATIN [Suspect]
     Active Substance: OXALIPLATIN
     Dosage: 130MG/M2,EVERY 3 WEEKS
     Dates: start: 20251015, end: 20251105
  7. CAPECITABINE [Suspect]
     Active Substance: CAPECITABINE
     Indication: Adenocarcinoma gastric
     Dosage: 1000 MG/M2, BID/D1-D14 PER CYCLE
  8. CAPECITABINE [Suspect]
     Active Substance: CAPECITABINE
     Dosage: 1000 MG/M2, BID/D1-D14 PER CYCLE
     Dates: start: 20251016, end: 20251030
  9. CAPECITABINE [Suspect]
     Active Substance: CAPECITABINE
     Dosage: 1000 MG/M2, BID/D1-D14 PER CYCLE
     Dates: start: 20251106, end: 20251120

REACTIONS (1)
  - Liver injury [Not Recovered/Not Resolved]

NARRATIVE: CASE EVENT DATE: 20251125
